FAERS Safety Report 23949148 (Version 2)
Quarter: 2024Q2

REPORT INFORMATION
  Report Type: Spontaneous
  Country: GB (occurrence: GB)
  Receive Date: 20240607
  Receipt Date: 20240619
  Transmission Date: 20240716
  Serious: Yes (Other)
  Sender: FDA-Public Use
  Company Number: GB-ABBVIE-5772420

PATIENT
  Sex: Female

DRUGS (3)
  1. AZACITIDINE [Suspect]
     Active Substance: AZACITIDINE
     Indication: Acute myeloid leukaemia
     Dosage: UNK
     Route: 065
     Dates: start: 202402
  2. VENETOCLAX [Suspect]
     Active Substance: VENETOCLAX
     Indication: Acute myeloid leukaemia
     Dosage: UNK
     Route: 048
     Dates: start: 202402, end: 202402
  3. VENETOCLAX [Suspect]
     Active Substance: VENETOCLAX
     Dosage: UNK (DELAYED SECOND DOSE (DAY 2))
     Route: 048
     Dates: start: 202402

REACTIONS (1)
  - Tumour lysis syndrome [Unknown]

NARRATIVE: CASE EVENT DATE: 20240201
